FAERS Safety Report 11237597 (Version 1)
Quarter: 2015Q3

REPORT INFORMATION
  Report Type: Spontaneous
  Country: US (occurrence: US)
  Receive Date: 20150703
  Receipt Date: 20150703
  Transmission Date: 20151125
  Serious: Yes (Hospitalization)
  Sender: FDA-Public Use
  Company Number: US-AMGEN-USASP2015065134

PATIENT
  Age: 44 Year
  Sex: Female

DRUGS (5)
  1. RITUXIMAB [Concomitant]
     Active Substance: RITUXIMAB
     Indication: NEOPLASM MALIGNANT
     Dosage: UNK
  2. NEULASTA [Suspect]
     Active Substance: PEGFILGRASTIM
     Indication: PRODUCT USED FOR UNKNOWN INDICATION
     Dosage: UNK UNK, UNK
     Route: 065
  3. CYCLOPHOSPHAMIDE. [Concomitant]
     Active Substance: CYCLOPHOSPHAMIDE
     Indication: NEOPLASM MALIGNANT
     Dosage: UNK
  4. PREDNISONE. [Concomitant]
     Active Substance: PREDNISONE
     Indication: NEOPLASM MALIGNANT
     Dosage: UNK
  5. ONCOVIN [Concomitant]
     Active Substance: VINCRISTINE SULFATE
     Indication: NEOPLASM MALIGNANT
     Dosage: UNK

REACTIONS (5)
  - Bone pain [Unknown]
  - Neutrophil count abnormal [Unknown]
  - Drug effect decreased [Unknown]
  - White blood cell count abnormal [Not Recovered/Not Resolved]
  - Pyrexia [Unknown]
